FAERS Safety Report 6091493-5 (Version None)
Quarter: 2009Q1

REPORT INFORMATION
  Report Type: 
  Country: None (occurrence: None)
  Receive Date: 20090225
  Receipt Date: 20090212
  Transmission Date: 20090719
  Serious: Yes (Hospitalization)
  Sender: FDA-Public Use
  Company Number: FR-SANOFI-SYNTHELABO-A02200900356

PATIENT
  Sex: Male

DRUGS (7)
  1. GLUCOVANCE [Concomitant]
     Indication: TYPE 2 DIABETES MELLITUS
     Route: 048
     Dates: start: 20060101, end: 20090115
  2. LEPONEX [Interacting]
     Indication: ABNORMAL BEHAVIOUR
     Route: 048
     Dates: start: 20081128, end: 20090115
  3. LEPONEX [Interacting]
     Dosage: UNK
     Route: 048
  4. ATARAX [Interacting]
     Indication: ANXIETY
     Route: 048
     Dates: start: 20081201, end: 20090115
  5. STILNOX [Suspect]
     Indication: INSOMNIA
     Route: 048
     Dates: start: 20081201, end: 20090115
  6. LEXOMIL [Interacting]
     Indication: ANXIETY
     Route: 048
     Dates: start: 20060101, end: 20090115
  7. DEPAKOTE [Concomitant]
     Indication: PSYCHOTIC DISORDER
     Route: 048
     Dates: start: 20081201, end: 20090117

REACTIONS (6)
  - DISTURBANCE IN ATTENTION [None]
  - DRUG INTERACTION [None]
  - DYSPNOEA [None]
  - PNEUMONIA ASPIRATION [None]
  - RESPIRATORY DEPRESSION [None]
  - SOMNOLENCE [None]
